FAERS Safety Report 23800222 (Version 1)
Quarter: 2024Q2

REPORT INFORMATION
  Report Type: Spontaneous
  Country: US (occurrence: None)
  Receive Date: 20240429
  Receipt Date: 20240429
  Transmission Date: 20240716
  Serious: No
  Sender: FDA-Public Use
  Company Number: None

PATIENT
  Sex: Male

DRUGS (2)
  1. LENALIDOMIDE [Suspect]
     Active Substance: LENALIDOMIDE
     Indication: Plasma cell myeloma
     Dosage: 15MG DAILY 21 DAY/OFF 14 BY MOUTH ?
     Route: 048
     Dates: start: 202307
  2. REVLIMID [Concomitant]

REACTIONS (4)
  - Confusional state [None]
  - Nausea [None]
  - Hypertension [None]
  - Mania [None]
